FAERS Safety Report 8972441 (Version 1)
Quarter: 2012Q4

REPORT INFORMATION
  Report Type: 
  Country: US (occurrence: US)
  Receive Date: 20121218
  Receipt Date: 20121218
  Transmission Date: 20130627
  Serious: No
  Sender: FDA-Public Use
  Company Number: US-ASTRAZENECA-2012SE92307

PATIENT
  Age: 42 Year
  Sex: Female
  Weight: 72.6 kg

DRUGS (3)
  1. SEROQUEL XR [Suspect]
     Indication: BIPOLAR DISORDER
     Route: 048
     Dates: start: 2010, end: 2010
  2. SEROQUEL XR [Suspect]
     Indication: BIPOLAR DISORDER
     Route: 048
     Dates: start: 2010
  3. FIORECET [Concomitant]
     Indication: MIGRAINE
     Dosage: GENERIC FORM, PRN
     Dates: start: 201211

REACTIONS (8)
  - Diarrhoea [Unknown]
  - Insomnia [Unknown]
  - Hypoaesthesia oral [Recovered/Resolved]
  - Headache [Not Recovered/Not Resolved]
  - Anxiety [Not Recovered/Not Resolved]
  - Blood pressure decreased [Recovered/Resolved]
  - Dizziness [Recovered/Resolved]
  - Intentional drug misuse [Unknown]
